FAERS Safety Report 7393499-2 (Version None)
Quarter: 2011Q2

REPORT INFORMATION
  Report Type: 
  Country: None (occurrence: None)
  Receive Date: 20110405
  Receipt Date: 20110321
  Transmission Date: 20111010
  Serious: Yes (Other)
  Sender: FDA-Public Use
  Company Number: US-BAYER-201039451NA

PATIENT
  Sex: Female
  Weight: 62.132 kg

DRUGS (6)
  1. YASMIN [Suspect]
     Indication: PRODUCT USED FOR UNKNOWN INDICATION
     Route: 048
     Dates: start: 20040901, end: 20091201
  2. TRI-LUMA [Concomitant]
     Dosage: 30 MG, UNK
     Route: 061
     Dates: start: 20050308
  3. METHERGINE [Concomitant]
     Dosage: 0.2 MG, UNK
     Route: 048
     Dates: start: 20040209
  4. PRENATE GT [Concomitant]
     Dosage: UNK UNK, QD
     Route: 048
  5. OCELLA [Suspect]
     Indication: PRODUCT USED FOR UNKNOWN INDICATION
     Route: 048
     Dates: start: 20040901, end: 20091201
  6. NATALCARE [Concomitant]
     Dosage: UNK UNK, QD
     Route: 048
     Dates: start: 20050815

REACTIONS (3)
  - GALLBLADDER DISORDER [None]
  - CHOLECYSTITIS CHRONIC [None]
  - GALLBLADDER CHOLESTEROLOSIS [None]
